FAERS Safety Report 6567314-0 (Version None)
Quarter: 2010Q1

REPORT INFORMATION
  Report Type: 
  Country: None (occurrence: None)
  Receive Date: 20100202
  Receipt Date: 20100121
  Transmission Date: 20100710
  Serious: Yes (Other)
  Sender: FDA-Public Use
  Company Number: PHHY2009JP59150

PATIENT
  Age: 64 Year
  Sex: Female

DRUGS (2)
  1. DIOVAN [Suspect]
     Indication: HYPERTENSION
     Dosage: 80 MG, QD
     Route: 048
     Dates: start: 20090512, end: 20100104
  2. KERLONG [Concomitant]
     Dosage: UNK
     Route: 048
     Dates: start: 20100104

REACTIONS (1)
  - IDIOPATHIC THROMBOCYTOPENIC PURPURA [None]
